FAERS Safety Report 5681586-6 (Version None)
Quarter: 2008Q1

REPORT INFORMATION
  Report Type: 
  Country: None (occurrence: None)
  Receive Date: 20080326
  Receipt Date: 20070215
  Transmission Date: 20080703
  Serious: No
  Sender: FDA-Public Use
  Company Number: US-BAYER-US-2007-006022

PATIENT
  Age: 33 Year
  Sex: Female
  Weight: 61 kg

DRUGS (1)
  1. MIRENA [Suspect]
     Indication: CONTRACEPTION
     Route: 015
     Dates: start: 20060601, end: 20070214

REACTIONS (4)
  - MENOMETRORRHAGIA [None]
  - OVARIAN CYST [None]
  - PAIN [None]
  - VAGINAL DISCHARGE [None]
